FAERS Safety Report 11997828 (Version 1)
Quarter: 2016Q1

REPORT INFORMATION
  Report Type: Spontaneous
  Country: US (occurrence: None)
  Receive Date: 20160202
  Receipt Date: 20160202
  Transmission Date: 20160526
  Serious: No
  Sender: FDA-Public Use
  Company Number: None

PATIENT
  Age: 30 Year
  Sex: Female

DRUGS (12)
  1. ZONEGRAN [Concomitant]
     Active Substance: ZONISAMIDE
  2. MYRBETRIQ [Concomitant]
     Active Substance: MIRABEGRON
  3. PSYLLIUM [Concomitant]
     Active Substance: PLANTAGO SEED
  4. CALCIUM GLUC [Concomitant]
  5. LAMICTAL [Concomitant]
     Active Substance: LAMOTRIGINE
  6. SYSTANE LIQ [Concomitant]
  7. VITAMIN D [Concomitant]
     Active Substance: CHOLECALCIFEROL
  8. SUTENT [Suspect]
     Active Substance: SUNITINIB MALATE
     Indication: NEOPLASM MALIGNANT
     Route: 048
     Dates: start: 20151117
  9. ASPIRIN. [Concomitant]
     Active Substance: ASPIRIN
  10. DEXAMETHASON [Concomitant]
     Active Substance: DEXAMETHASONE
  11. OMEPRAZOLE. [Concomitant]
     Active Substance: OMEPRAZOLE
  12. SIMVASTATIN. [Concomitant]
     Active Substance: SIMVASTATIN

REACTIONS (1)
  - Platelet count decreased [None]

NARRATIVE: CASE EVENT DATE: 201512
